FAERS Safety Report 8461321-9 (Version None)
Quarter: 2012Q2

REPORT INFORMATION
  Report Type: 
  Country: None (occurrence: None)
  Receive Date: 20120625
  Receipt Date: 20120613
  Transmission Date: 20120825
  Serious: Yes (Other)
  Sender: FDA-Public Use
  Company Number: CA-JNJFOC-20120607529

PATIENT
  Sex: Female
  Weight: 66.2 kg

DRUGS (1)
  1. REMICADE [Suspect]
     Indication: CROHN'S DISEASE
     Route: 042
     Dates: start: 20100920

REACTIONS (4)
  - ORAL CANDIDIASIS [None]
  - DECREASED APPETITE [None]
  - HAEMATOCHEZIA [None]
  - GENERAL PHYSICAL HEALTH DETERIORATION [None]
